FAERS Safety Report 9350318 (Version 1)
Quarter: 2013Q2

REPORT INFORMATION
  Report Type: Spontaneous
  Country: US (occurrence: US)
  Receive Date: 20130617
  Receipt Date: 20130617
  Transmission Date: 20140414
  Serious: Yes (Hospitalization)
  Sender: FDA-Public Use
  Company Number: US-JNJFOC-20130603769

PATIENT
  Sex: Female

DRUGS (10)
  1. ROGAINE FOR WOMEN REGULAR STRENGTH [Suspect]
     Route: 061
  2. ROGAINE FOR WOMEN REGULAR STRENGTH [Suspect]
     Indication: HAIR GROWTH ABNORMAL
     Route: 061
     Dates: start: 20110701, end: 20130530
  3. NITRO [Concomitant]
     Indication: CHEST DISCOMFORT
     Route: 065
     Dates: start: 20130512
  4. BABY ASPIRIN [Concomitant]
     Indication: PROPHYLAXIS
     Route: 065
  5. CARDIZEM [Concomitant]
     Indication: CARDIAC DISORDER
     Dosage: SINCE 30 YEARS
     Route: 065
     Dates: start: 1983
  6. DIOVAN [Concomitant]
     Indication: BLOOD PRESSURE
     Dosage: 160/12.5 DAILY, SINCE 30 YEARS
     Route: 065
     Dates: start: 1983
  7. VICODIN [Concomitant]
     Indication: BACK PAIN
     Dosage: SINCE 6 YEARS
     Route: 065
     Dates: start: 2007
  8. SOMA [Concomitant]
     Indication: MUSCLE SPASMS
     Dosage: SINCE 6 YEARS
     Route: 065
     Dates: start: 2007
  9. FEMHRT [Concomitant]
     Indication: HORMONE REPLACEMENT THERAPY
     Dosage: 0.5/2.5 DAILY, SINCE 24 YEARS
     Route: 065
     Dates: start: 1989
  10. PROBIOTIC [Concomitant]
     Indication: GASTROINTESTINAL DISORDER
     Dosage: SINCE 5 YEARS
     Route: 065
     Dates: start: 2008

REACTIONS (1)
  - Cardiac disorder [Recovering/Resolving]
